FAERS Safety Report 21110885 (Version 1)
Quarter: 2022Q3

REPORT INFORMATION
  Report Type: Spontaneous
  Country: US (occurrence: None)
  Receive Date: 20220720
  Receipt Date: 20220720
  Transmission Date: 20221027
  Serious: Yes (Other)
  Sender: FDA-Public Use
  Company Number: None

PATIENT
  Age: 69 Year
  Sex: Female
  Weight: 72 kg

DRUGS (4)
  1. TERBINAFINE [Suspect]
     Active Substance: TERBINAFINE
     Dosage: FREQUENCY : DAILY;?
     Route: 048
     Dates: start: 20220406, end: 20220703
  2. SERTRALINE [Concomitant]
     Active Substance: SERTRALINE HYDROCHLORIDE
     Dates: start: 20201103
  3. DUONEB [Concomitant]
     Active Substance: ALBUTEROL SULFATE\IPRATROPIUM BROMIDE
     Dates: start: 20200320
  4. ACYCLOVIR [Concomitant]
     Active Substance: ACYCLOVIR
     Dates: start: 20220106, end: 20220111

REACTIONS (7)
  - Drug reaction with eosinophilia and systemic symptoms [None]
  - Dyspnoea [None]
  - Mucosal inflammation [None]
  - Neuropathy peripheral [None]
  - Liver function test increased [None]
  - Blood creatinine increased [None]
  - Inflammatory marker increased [None]

NARRATIVE: CASE EVENT DATE: 20220701
